FAERS Safety Report 7302366-1 (Version None)
Quarter: 2011Q1

REPORT INFORMATION
  Report Type: 
  Country: None (occurrence: None)
  Receive Date: 20110218
  Receipt Date: 20110211
  Transmission Date: 20110831
  Serious: Yes (Other)
  Sender: FDA-Public Use
  Company Number: CHPA2011US02689

PATIENT
  Age: 35 Year
  Sex: Male
  Weight: 90.703 kg

DRUGS (2)
  1. THERAFLU FLU AND SORE THROAT [Suspect]
     Indication: INFLUENZA
  2. THERAFLU FLU AND SORE THROAT [Suspect]
     Indication: NASOPHARYNGITIS
     Dosage: 2 CAPFULS, Q4H
     Route: 048
     Dates: start: 20110201, end: 20110211

REACTIONS (8)
  - WRONG TECHNIQUE IN DRUG USAGE PROCESS [None]
  - DECREASED APPETITE [None]
  - INSOMNIA [None]
  - OFF LABEL USE [None]
  - HALLUCINATION [None]
  - MYDRIASIS [None]
  - FEELING ABNORMAL [None]
  - DELUSION [None]
